FAERS Safety Report 6631342-7 (Version None)
Quarter: 2010Q1

REPORT INFORMATION
  Report Type: 
  Country: None (occurrence: None)
  Receive Date: 20100311
  Receipt Date: 20100311
  Transmission Date: 20100710
  Serious: Yes (Hospitalization)
  Sender: FDA-Public Use
  Company Number: None

PATIENT

DRUGS (6)
  1. CYTARABINE [Suspect]
     Dosage: 70 MG
  2. DAUNORUBICIN HCL [Suspect]
     Dosage: 244 MG
  3. METHOTREXATE [Suspect]
     Dosage: 15 MG
  4. METHYLPREDNISOLONE [Suspect]
     Dosage: 4050 MG
  5. PEG-L ASPARAGINASE (K-H) [Suspect]
     Dosage: 6150 IU
  6. VINCRISTINE SULFATE [Suspect]
     Dosage: 8 MG

REACTIONS (15)
  - ACUTE HEPATIC FAILURE [None]
  - DIALYSIS [None]
  - FLUID OVERLOAD [None]
  - GASTROINTESTINAL DISORDER [None]
  - HEPATIC ENCEPHALOPATHY [None]
  - HEPATIC STEATOSIS [None]
  - HEPATOCELLULAR INJURY [None]
  - HYPOTENSION [None]
  - HYPOXIA [None]
  - METABOLIC ACIDOSIS [None]
  - MYALGIA [None]
  - PANCREATITIS ACUTE [None]
  - RENAL INJURY [None]
  - SEPTIC SHOCK [None]
  - TACHYPNOEA [None]
